FAERS Safety Report 5763892-X (Version None)
Quarter: 2008Q2

REPORT INFORMATION
  Report Type: 
  Country: None (occurrence: None)
  Receive Date: 20080606
  Receipt Date: 20080606
  Transmission Date: 20081010
  Serious: Yes (Other)
  Sender: FDA-Public Use
  Company Number: None

PATIENT
  Sex: Male

DRUGS (1)
  1. REMICADE [Suspect]
     Indication: PSORIASIS
     Dosage: 150ML/HR

REACTIONS (5)
  - BACK PAIN [None]
  - CHILLS [None]
  - DIZZINESS [None]
  - NAUSEA [None]
  - WHEEZING [None]
